FAERS Safety Report 11054997 (Version 1)
Quarter: 2015Q2

REPORT INFORMATION
  Report Type: Spontaneous
  Country: US (occurrence: US)
  Receive Date: 20150422
  Receipt Date: 20150422
  Transmission Date: 20150821
  Serious: No
  Sender: FDA-Public Use
  Company Number: US-SA-2014SA055577

PATIENT
  Age: 96 Year
  Sex: Female

DRUGS (3)
  1. LOVENOX [Suspect]
     Active Substance: ENOXAPARIN SODIUM
     Indication: PROPHYLAXIS
     Route: 030
     Dates: start: 201404
  2. LASIX [Concomitant]
     Active Substance: FUROSEMIDE
  3. COUMADIN [Concomitant]
     Active Substance: WARFARIN SODIUM
     Dates: end: 201404

REACTIONS (10)
  - Gait disturbance [Unknown]
  - Haematocrit decreased [Unknown]
  - Injection site mass [Unknown]
  - Incorrect route of drug administration [Unknown]
  - Swelling face [Unknown]
  - Muscular weakness [Unknown]
  - Lethargy [Unknown]
  - Hypersomnia [Unknown]
  - Dysstasia [Unknown]
  - Injection site bruising [Unknown]
